FAERS Safety Report 8978991 (Version 1)
Quarter: 2012Q4

REPORT INFORMATION
  Report Type: 
  Country: BE (occurrence: ZA)
  Receive Date: 20121221
  Receipt Date: 20121221
  Transmission Date: 20130627
  Serious: Yes (Death)
  Sender: FDA-Public Use
  Company Number: ZA-B.I. PHARMACEUTICALS,INC./RIDGEFIELD-2012-BI-03605GD

PATIENT
  Age: 38 Year
  Sex: Male

DRUGS (10)
  1. NEVIRAPINE [Suspect]
     Indication: HIV TEST POSITIVE
     Dosage: 400 mg
  2. NEVIRAPINE [Suspect]
     Dates: start: 20090505
  3. EFAVIRENZ [Suspect]
     Indication: HIV TEST POSITIVE
     Dosage: 600 mg
     Dates: end: 20090505
  4. ISONIAZIDE [Suspect]
     Indication: MYCOBACTERIUM TUBERCULOSIS COMPLEX TEST POSITIVE
     Dates: start: 20090403, end: 20090505
  5. COTRIMOXAZOLE [Suspect]
  6. STAVUDINE [Concomitant]
     Indication: HIV TEST POSITIVE
     Dosage: 30 mg
  7. LAMIVUDINE [Concomitant]
     Indication: HIV TEST POSITIVE
     Dosage: 150 mg
  8. RIFAMPICIN [Concomitant]
     Indication: MYCOBACTERIUM TUBERCULOSIS COMPLEX TEST POSITIVE
     Dates: start: 20090403
  9. PYRAZINAMIDE [Concomitant]
     Indication: MYCOBACTERIUM TUBERCULOSIS COMPLEX TEST POSITIVE
     Dates: start: 20090403
  10. ETHAMBUTOL [Concomitant]
     Indication: MYCOBACTERIUM TUBERCULOSIS COMPLEX TEST POSITIVE
     Dates: start: 20090403

REACTIONS (2)
  - Pneumonia aspiration [Fatal]
  - Alanine aminotransferase increased [Recovered/Resolved]
